FAERS Safety Report 5653738-2 (Version None)
Quarter: 2008Q1

REPORT INFORMATION
  Report Type: 
  Country: None (occurrence: None)
  Receive Date: 20080204
  Receipt Date: 20071119
  Transmission Date: 20080703
  Serious: Yes (Other)
  Sender: FDA-Public Use
  Company Number: SPV1-2007-04976

PATIENT
  Age: 12 Year
  Sex: Male

DRUGS (2)
  1. DAYTRANA [Suspect]
     Indication: ATTENTION DEFICIT/HYPERACTIVITY DISORDER
     Dosage: 20 MG, 1X/DAY:QD; 20 MG, 1X/DAY:QD, TRANSDERMAL
     Route: 062
     Dates: start: 20070705, end: 20070908
  2. DAYTRANA [Suspect]
     Indication: ATTENTION DEFICIT/HYPERACTIVITY DISORDER
     Dosage: 20 MG, 1X/DAY:QD; 20 MG, 1X/DAY:QD, TRANSDERMAL
     Route: 062
     Dates: start: 20070916, end: 20070925

REACTIONS (4)
  - APPLICATION SITE EXCORIATION [None]
  - APPLICATION SITE IRRITATION [None]
  - APPLICATION SITE SCAB [None]
  - DERMATITIS CONTACT [None]
